FAERS Safety Report 13028820 (Version 2)
Quarter: 2017Q1

REPORT INFORMATION
  Report Type: Report from Study
  Country: US (occurrence: US)
  Receive Date: 20161214
  Receipt Date: 20170113
  Transmission Date: 20170428
  Serious: Yes (Hospitalization, Other)
  Sender: FDA-Public Use
  Company Number: US-TEVA-683034USA

PATIENT
  Age: 61 Year
  Sex: Male
  Weight: 107.9 kg

DRUGS (14)
  1. CINQAIR [Suspect]
     Active Substance: RESLIZUMAB
     Indication: ASTHMA
     Route: 042
     Dates: start: 20160524, end: 20160524
  2. CARDIZEM CD [Concomitant]
     Active Substance: DILTIAZEM HYDROCHLORIDE
     Dosage: 720 MILLIGRAM DAILY;
     Route: 048
  3. ZITHROMAX [Concomitant]
     Active Substance: AZITHROMYCIN DIHYDRATE
     Route: 048
  4. ZYRTEC [Concomitant]
     Active Substance: CETIRIZINE HYDROCHLORIDE
     Dosage: 20 MILLIGRAM DAILY;
     Route: 048
  5. VITAMIN B12 [Concomitant]
     Active Substance: CYANOCOBALAMIN
     Dosage: 1000 MICROGRAM DAILY;
     Route: 048
  6. PROVENTIL HFA [Concomitant]
     Active Substance: ALBUTEROL SULFATE
     Dosage: 2 PUFFS INTO THE LUNGS EVERY 4 HOURS AS NEEDED
     Route: 055
  7. VITAMIN D3 [Concomitant]
     Active Substance: CHOLECALCIFEROL
     Dosage: 4000 IU (INTERNATIONAL UNIT) DAILY;
     Route: 048
  8. QVAR [Concomitant]
     Active Substance: BECLOMETHASONE DIPROPIONATE
     Dosage: 80 MICROGRAM DAILY; 2 PUFFS INTO THE LUNGS 2 TIMES A DAY
     Route: 055
  9. EPINEPHRINE. [Concomitant]
     Active Substance: EPINEPHRINE
     Indication: ANAPHYLACTIC REACTION
     Dosage: 0.3MG/0.3ML
     Route: 030
  10. ASPIRIN (E.C.) [Concomitant]
     Active Substance: ASPIRIN
     Route: 048
  11. SYMBICORT [Concomitant]
     Active Substance: BUDESONIDE\FORMOTEROL FUMARATE DIHYDRATE
     Dosage: 160-4.5MCG/2 PUFFS INTO THE LUNGS 2 TIMES A DAY
     Route: 055
  12. ALPRAZOLAM. [Concomitant]
     Active Substance: ALPRAZOLAM
     Indication: ANXIETY
     Dosage: 0.5 MG EVERY 4 HOURS AS NEEDED
     Route: 048
  13. ABILIFY [Concomitant]
     Active Substance: ARIPIPRAZOLE
     Dosage: 2.5 MILLIGRAM DAILY; DIVIDES IN HALF
     Route: 048
  14. PERIACTIN [Concomitant]
     Active Substance: CYPROHEPTADINE HYDROCHLORIDE
     Dosage: 8 MILLIGRAM DAILY;
     Route: 048

REACTIONS (10)
  - Pneumonia [Recovered/Resolved]
  - Feeling abnormal [Recovered/Resolved]
  - Sepsis [Recovered/Resolved]
  - Asthma [Recovered/Resolved]
  - Dizziness [Recovered/Resolved]
  - Type 2 diabetes mellitus [Unknown]
  - Paraesthesia [Recovered/Resolved]
  - Pyrexia [Recovered/Resolved]
  - Cognitive disorder [Recovered/Resolved]
  - Vomiting [Recovered/Resolved]

NARRATIVE: CASE EVENT DATE: 2016
